FAERS Safety Report 6840883-9 (Version None)
Quarter: 2010Q3

REPORT INFORMATION
  Report Type: 
  Country: None (occurrence: None)
  Receive Date: 20100714
  Receipt Date: 20070620
  Transmission Date: 20110219
  Serious: No
  Sender: FDA-Public Use
  Company Number: US-PFIZER INC-2007052361

PATIENT
  Sex: Female
  Weight: 54.9 kg

DRUGS (5)
  1. CHANTIX [Suspect]
     Indication: EX-TOBACCO USER
     Dosage: EVERY DAY
     Dates: start: 20070601
  2. OXYCONTIN [Suspect]
     Indication: NERVE INJURY
  3. IMIPRAMINE [Concomitant]
  4. ALL OTHER THERAPEUTIC PRODUCTS [Concomitant]
  5. ETODOLAC [Concomitant]

REACTIONS (2)
  - ABNORMAL DREAMS [None]
  - DRUG EFFECT DECREASED [None]
